FAERS Safety Report 19855535 (Version 1)
Quarter: 2021Q3

REPORT INFORMATION
  Report Type: Spontaneous
  Country: US (occurrence: US)
  Receive Date: 20210920
  Receipt Date: 20210920
  Transmission Date: 20211014
  Serious: No
  Sender: FDA-Public Use
  Company Number: None

PATIENT
  Age: 50 Year
  Sex: Female
  Weight: 130 kg

DRUGS (1)
  1. REGEN?COV [Suspect]
     Active Substance: CASIRIVIMAB\IMDEVIMAB
     Indication: COVID-19
     Dates: start: 20210914, end: 20210914

REACTIONS (4)
  - Pruritus [None]
  - Rash erythematous [None]
  - Chest discomfort [None]
  - Infusion related reaction [None]

NARRATIVE: CASE EVENT DATE: 20210914
